FAERS Safety Report 25847936 (Version 3)
Quarter: 2025Q4

REPORT INFORMATION
  Report Type: Spontaneous
  Country: US (occurrence: US)
  Receive Date: 20250925
  Receipt Date: 20251204
  Transmission Date: 20260118
  Serious: No
  Sender: CIPLA
  Company Number: US-CIPLA LTD.-2025US11677

PATIENT

DRUGS (6)
  1. SERTRALINE [Suspect]
     Active Substance: SERTRALINE HYDROCHLORIDE
     Indication: Depression
     Dosage: 50 MILLIGRAM, QD (1 TABLET ONCE A DAY)
     Route: 065
     Dates: start: 20250712
  2. SERTRALINE [Suspect]
     Active Substance: SERTRALINE HYDROCHLORIDE
     Indication: Anxiety
  3. ACYCLOVIR [Concomitant]
     Active Substance: ACYCLOVIR
     Indication: Product used for unknown indication
     Dosage: UNK, PRN (OCCASIONALLY / WHEN NEEDED )
     Route: 065
  4. CLARITIN-D NOS [Concomitant]
     Active Substance: LORATADINE\PSEUDOEPHEDRINE SULFATE
     Indication: Product used for unknown indication
     Dosage: STRENGTH: 25 (UNITS UNSPECFIED)
     Route: 065
     Dates: start: 202509
  5. ROFLUMILAST [Concomitant]
     Active Substance: ROFLUMILAST
     Indication: Asthma
     Dosage: 250 MILLIGRAM, UNK
     Route: 065
     Dates: start: 20250712
  6. REXULTI [Concomitant]
     Active Substance: BREXPIPRAZOLE
     Indication: Bipolar disorder
     Dosage: UNK
     Route: 065

REACTIONS (1)
  - Tremor [Recovered/Resolved]

NARRATIVE: CASE EVENT DATE: 20250801
